FAERS Safety Report 5277599-9 (Version None)
Quarter: 2007Q1

REPORT INFORMATION
  Report Type: 
  Country: None (occurrence: None)
  Receive Date: 20070327
  Receipt Date: 20070314
  Transmission Date: 20070707
  Serious: Yes (Hospitalization)
  Sender: FDA-Public Use
  Company Number: IT-SHR-IT-2007-010038

PATIENT
  Age: 72 Year
  Sex: Male

DRUGS (1)
  1. FLUDARABINE PHOSPHATE [Suspect]
     Dosage: 40 MG QD X 5
     Route: 042
     Dates: start: 20070305, end: 20070309

REACTIONS (1)
  - ASCITES [None]
